FAERS Safety Report 7320290-5 (Version None)
Quarter: 2011Q1

REPORT INFORMATION
  Report Type: 
  Country: None (occurrence: None)
  Receive Date: 20110223
  Receipt Date: 20110223
  Transmission Date: 20110831
  Serious: Yes (Hospitalization)
  Sender: FDA-Public Use
  Company Number: None

PATIENT
  Age: 74 Year
  Sex: Male
  Weight: 74 kg

DRUGS (1)
  1. THIOGUANINE [Suspect]
     Indication: THROMBOCYTOSIS
     Dosage: 40 MG BID PO
     Route: 048
     Dates: start: 20110111, end: 20110217

REACTIONS (4)
  - BLOOD BILIRUBIN INCREASED [None]
  - ASPARTATE AMINOTRANSFERASE INCREASED [None]
  - INTERNATIONAL NORMALISED RATIO ABNORMAL [None]
  - ALANINE AMINOTRANSFERASE INCREASED [None]
